FAERS Safety Report 4627978-5 (Version None)
Quarter: 2005Q2

REPORT INFORMATION
  Report Type: 
  Country: None (occurrence: None)
  Receive Date: 20050401
  Receipt Date: 20050316
  Transmission Date: 20051028
  Serious: Yes (Other)
  Sender: FDA-Public Use
  Company Number: 2005S1001445

PATIENT
  Sex: Female
  Weight: 108.8633 kg

DRUGS (8)
  1. METFORMIN HCL [Suspect]
     Indication: DIABETES MELLITUS
     Dosage: SEE IMAGE, PO
     Route: 048
  2. PIOGLITAZONE HCL [Concomitant]
  3. HYDROCHLORIDE [Concomitant]
  4. CALCIUM GLUCONATE [Concomitant]
  5. LEVOTHYROXINE [Concomitant]
  6. LISINOPRIL [Concomitant]
  7. HYDROCHLOROTHIAZIDE [Concomitant]
  8. GLIBENCLAMIDE [Concomitant]

REACTIONS (5)
  - ANAL FISSURE [None]
  - ANORECTAL DISORDER [None]
  - DIARRHOEA [None]
  - RECTAL HAEMORRHAGE [None]
  - SKIN IRRITATION [None]
